FAERS Safety Report 10171497 (Version 1)
Quarter: 2014Q2

REPORT INFORMATION
  Report Type: Spontaneous
  Country: US (occurrence: None)
  Receive Date: 20140428
  Receipt Date: 20140428
  Transmission Date: 20141212
  Serious: Yes (Other)
  Sender: FDA-Public Use
  Company Number: PHEH2013US026359

PATIENT
  Sex: Male
  Weight: 77.6 kg

DRUGS (5)
  1. GILENYA [Suspect]
     Route: 048
     Dates: end: 20131111
  2. TESTOSTERONE [Concomitant]
  3. PROVIGIL/MODAFINIL [Concomitant]
  4. SETRALIN [Concomitant]
  5. VITAMIN D [Concomitant]

REACTIONS (4)
  - Multiple sclerosis [None]
  - Drug ineffective [None]
  - Peroneal nerve palsy [None]
  - Cognitive disorder [None]
